FAERS Safety Report 6302109-4 (Version None)
Quarter: 2009Q3

REPORT INFORMATION
  Report Type: 
  Country: None (occurrence: None)
  Receive Date: 20090807
  Receipt Date: 20090803
  Transmission Date: 20100115
  Serious: Yes (Other)
  Sender: FDA-Public Use
  Company Number: US-JNJCH-2009020925

PATIENT
  Age: 55 Year
  Sex: Male
  Weight: 94.3 kg

DRUGS (3)
  1. ROGAINE [Suspect]
     Indication: ALOPECIA AREATA
     Dosage: TEXT:RECOMMENDED DOSE TWICE DAILY
     Route: 061
  2. ACCUPRIL [Concomitant]
     Indication: HYPERTENSION
     Dosage: TEXT:20 MG ONCE DAILY
     Route: 065
  3. HYDROCHLOROTHIAZIDE [Concomitant]
     Indication: HYPERTENSION
     Dosage: TEXT:25 MG ONCE DAILY
     Route: 065

REACTIONS (1)
  - CAUSTIC INJURY [None]
